FAERS Safety Report 20247147 (Version 1)
Quarter: 2021Q4

REPORT INFORMATION
  Report Type: Spontaneous
  Country: US (occurrence: US)
  Receive Date: 20211229
  Receipt Date: 20211229
  Transmission Date: 20220303
  Serious: No
  Sender: FDA-Public Use
  Company Number: US-PFIZER INC-2021823698

PATIENT
  Age: 67 Year
  Sex: Female

DRUGS (2)
  1. IBRANCE [Suspect]
     Active Substance: PALBOCICLIB
     Indication: Breast cancer female
     Dosage: 100 MG, CYCLIC, TAKE 1 TAB PO QD FOR 21 DAYS, AND 7 DAYS OFF
     Route: 048
     Dates: start: 20210316
  2. IBRANCE [Suspect]
     Active Substance: PALBOCICLIB
     Dosage: 125 MG, CYCLIC, TAKE 1 TAB PO QD FOR 21 DAYS, AND 7 DAYS OFF
     Route: 048
     Dates: start: 20210316

REACTIONS (1)
  - Fatigue [Unknown]
